FAERS Safety Report 19722233 (Version 1)
Quarter: 2021Q3

REPORT INFORMATION
  Report Type: Spontaneous
  Country: DE (occurrence: DE)
  Receive Date: 20210819
  Receipt Date: 20210819
  Transmission Date: 20211014
  Serious: Yes (Other)
  Sender: FDA-Public Use
  Company Number: DE-MYLANLABS-2021M1052067

PATIENT
  Age: 71 Year
  Sex: Female
  Weight: 82 kg

DRUGS (8)
  1. AMLODIPINE W/HYDROCHLOROTHIAZIDE/VALSARTAN [Suspect]
     Active Substance: AMLODIPINE BESYLATE\HYDROCHLOROTHIAZIDE\VALSARTAN
     Dosage: 0.5 DOSAGE FORM, AM, 0.5 DF, PER DAY
     Dates: start: 20210208
  2. METFORMIN [Concomitant]
     Active Substance: METFORMIN HYDROCHLORIDE
     Indication: DIABETES MELLITUS
     Dosage: 500 MILLIGRAM, QD, 500 MG PER DAY, 0?0?1
     Dates: start: 2019
  3. CARVEDILOL. [Suspect]
     Active Substance: CARVEDILOL
     Indication: HYPERTENSION
     Dosage: 0.5 DOSAGE FORM, 25 MG PER DAY, 0.5?0?0.5
     Route: 048
     Dates: start: 202004
  4. SPIRONOLACTONE. [Suspect]
     Active Substance: SPIRONOLACTONE
     Indication: HYPOTENSION
     Dosage: 0.5 DOSAGE FORM, QD, 25 MG PER DAY, 0.5?0?0
     Route: 048
     Dates: end: 202101
  5. AMLODIPINE W/HYDROCHLOROTHIAZIDE/VALSARTAN [Suspect]
     Active Substance: AMLODIPINE BESYLATE\HYDROCHLOROTHIAZIDE\VALSARTAN
     Indication: HYPERTENSION
     Dosage: 1 DOSAGE FORM, AM, 10/320/25 MG PER DAY IN THE MORNING
     Route: 048
     Dates: start: 202004, end: 202101
  6. DEKRISTOL [Concomitant]
     Active Substance: CHOLECALCIFEROL
     Indication: PRODUCT USED FOR UNKNOWN INDICATION
     Dosage: 2 DOSAGE FORM, QW, 2 DF, PER WEEK
     Dates: start: 2018
  7. VITAMIN C [Concomitant]
     Active Substance: ASCORBIC ACID
     Indication: PROPHYLAXIS
     Dosage: 500 MILLIGRAM, QD, 1?0?0
     Dates: start: 2019
  8. L?THYROXIN                         /00068001/ [Concomitant]
     Active Substance: LEVOTHYROXINE
     Indication: THYROID HORMONE REPLACEMENT THERAPY
     Dosage: 1 DOSAGE FORM, QD, 1 DF, PER DAY, 1?0?0
     Dates: start: 2019

REACTIONS (12)
  - Syncope [Not Recovered/Not Resolved]
  - Angina pectoris [Not Recovered/Not Resolved]
  - Dyspnoea [Recovering/Resolving]
  - Back pain [Not Recovered/Not Resolved]
  - Palpitations [Not Recovered/Not Resolved]
  - Respiratory distress [Recovering/Resolving]
  - Myalgia [Unknown]
  - Haematoma [Not Recovered/Not Resolved]
  - Mucosal inflammation [Not Recovered/Not Resolved]
  - Chest pain [Not Recovered/Not Resolved]
  - Vertigo [Not Recovered/Not Resolved]
  - Oral mucosal blistering [Not Recovered/Not Resolved]

NARRATIVE: CASE EVENT DATE: 202004
